FAERS Safety Report 6318500-6 (Version None)
Quarter: 2009Q3

REPORT INFORMATION
  Report Type: 
  Country: None (occurrence: None)
  Receive Date: 20090821
  Receipt Date: 20090812
  Transmission Date: 20100115
  Serious: Yes (Other)
  Sender: FDA-Public Use
  Company Number: US-ABBOTT-09P-163-0591007-00

PATIENT
  Sex: Female
  Weight: 102.15 kg

DRUGS (12)
  1. DEPAKOTE ER [Suspect]
     Indication: CONVULSION
     Dates: start: 20060101
  2. UNKNOWN ALLERGY SHOT [Suspect]
     Indication: HYPERSENSITIVITY
     Dates: start: 20090801, end: 20090801
  3. LISINOPRIL [Concomitant]
     Indication: HYPERTENSION
  4. CYLERT [Concomitant]
     Indication: NARCOLEPSY
  5. CALTRATE [Concomitant]
     Indication: MINERAL SUPPLEMENTATION
  6. CLARITIN [Concomitant]
     Indication: HYPERSENSITIVITY
  7. ALEVE [Concomitant]
     Indication: PAIN
  8. ASCORBIC ACID [Concomitant]
     Indication: ROUTINE HEALTH MAINTENANCE
  9. POLY IRON [Concomitant]
     Indication: ANAEMIA
  10. GEMFIBROZIL [Concomitant]
     Indication: DRUG USE FOR UNKNOWN INDICATION
  11. LUMIGAN EYE DROPS [Concomitant]
     Indication: DRUG USE FOR UNKNOWN INDICATION
  12. WOMENS TABS [Concomitant]
     Indication: ROUTINE HEALTH MAINTENANCE

REACTIONS (3)
  - CONVULSION [None]
  - COUGH [None]
  - INCOHERENT [None]
